FAERS Safety Report 10539734 (Version 2)
Quarter: 2014Q4

REPORT INFORMATION
  Report Type: Spontaneous
  Country: US (occurrence: US)
  Receive Date: 20141024
  Receipt Date: 20141031
  Transmission Date: 20150529
  Serious: Yes (Other)
  Sender: FDA-Public Use
  Company Number: US-ROCHE-1477874

PATIENT
  Age: 82 Year
  Sex: Female

DRUGS (2)
  1. ACTILYSE [Suspect]
     Active Substance: ALTEPLASE
     Indication: ISCHAEMIC STROKE
     Dosage: WEIGHT-BASED BOLUS FOLLOWED BY CONTINUED DRIP
     Route: 040
  2. ACTILYSE [Suspect]
     Active Substance: ALTEPLASE
     Dosage: WEIGHT-BASED BOLUS FOLLOWED BY CONTINUED DRIP
     Route: 041

REACTIONS (4)
  - Drug ineffective [Unknown]
  - Subarachnoid haemorrhage [Recovered/Resolved]
  - Arterial haemorrhage [Recovered/Resolved]
  - Arterial injury [Recovered/Resolved]
